FAERS Safety Report 5089494-9 (Version None)
Quarter: 2006Q3

REPORT INFORMATION
  Report Type: 
  Country: None (occurrence: None)
  Receive Date: 20060822
  Receipt Date: 20060807
  Transmission Date: 20061208
  Serious: Yes (Hospitalization, Other)
  Sender: FDA-Public Use
  Company Number: US200606003715

PATIENT
  Age: 55 Year
  Sex: Female

DRUGS (1)
  1. HUMULIN 70/30 [Suspect]
     Indication: DIABETES MELLITUS
     Dates: end: 20060101

REACTIONS (6)
  - CONVULSION [None]
  - DELIRIUM [None]
  - HYPERTENSION [None]
  - MENTAL DISORDER [None]
  - PHARMACEUTICAL PRODUCT COMPLAINT [None]
  - SHOCK HYPOGLYCAEMIC [None]
